FAERS Safety Report 26149870 (Version 1)
Quarter: 2025Q4

REPORT INFORMATION
  Report Type: Spontaneous
  Country: US (occurrence: None)
  Receive Date: 20251211
  Receipt Date: 20251211
  Transmission Date: 20260118
  Serious: Yes (Hospitalization)
  Sender: FDA-CTU
  Company Number: None

PATIENT
  Age: 35 Year
  Sex: Female

DRUGS (11)
  1. MYCOPHENOLIC ACID [Suspect]
     Active Substance: MYCOPHENOLIC ACID
     Indication: Lung transplant
     Dosage: 540 MG BID ORAL
     Route: 048
     Dates: start: 20251029
  2. ENVARSUS XR 1 MG TABLETS [Concomitant]
  3. GAS RELIEF X/S CHERRY CHEW TABS [Concomitant]
  4. VALACYCLOVIR 1GM TABLETS [Concomitant]
  5. PREVYMIS 480MG TABLETS [Concomitant]
  6. PROPRANOLOL 20MG TABLETS [Concomitant]
  7. INSULIN LISPRO 100U/ML KWIKPEN 3ML [Concomitant]
  8. POSACONAZOLE 1 00MG DR TABLETS [Concomitant]
  9. MELATONIN 10MG QUICK DISSOLVE TABS [Concomitant]
  10. CLONAZEPAM [Concomitant]
     Active Substance: CLONAZEPAM
  11. PRAVASTATIN 40MG TABLETS [Concomitant]

REACTIONS (2)
  - Gastrointestinal disorder [None]
  - Flank pain [None]

NARRATIVE: CASE EVENT DATE: 20251101
